FAERS Safety Report 7234090-8 (Version None)
Quarter: 2011Q1

REPORT INFORMATION
  Report Type: 
  Country: None (occurrence: None)
  Receive Date: 20110113
  Receipt Date: 20110113
  Transmission Date: 20110831
  Serious: Yes (Hospitalization)
  Sender: FDA-Public Use
  Company Number: None

PATIENT
  Sex: Male
  Weight: 22.5 kg

DRUGS (3)
  1. ONDANSETRON [Suspect]
     Indication: VOMITING
     Dosage: 4MG ODT Q8HOURS PO
     Route: 048
  2. ONDANSETRON [Suspect]
     Indication: NAUSEA
     Dosage: 4MG ODT Q8HOURS PO
     Route: 048
  3. ONDANSETRON [Suspect]
     Indication: RHABDOMYOSARCOMA
     Dosage: 4MG ODT Q8HOURS PO
     Route: 048

REACTIONS (1)
  - PRODUCT SOLUBILITY ABNORMAL [None]
